FAERS Safety Report 12503761 (Version 1)
Quarter: 2016Q2

REPORT INFORMATION
  Report Type: Spontaneous
  Country: US (occurrence: None)
  Receive Date: 20160627
  Receipt Date: 20160627
  Transmission Date: 20160815
  Serious: Yes (Other)
  Sender: FDA-Public Use
  Company Number: None

PATIENT
  Age: 52 Year
  Sex: Female
  Weight: 84.37 kg

DRUGS (4)
  1. MULTI VITAMIN [Concomitant]
     Active Substance: VITAMINS
  2. ONDANSETRON [Suspect]
     Active Substance: ONDANSETRON
     Indication: NAUSEA
     Dosage: ONE TIME/ER VISIT, INTO A VEIN
     Dates: start: 20160621, end: 20160621
  3. IRON [Concomitant]
     Active Substance: IRON
  4. GINGER. [Concomitant]
     Active Substance: GINGER

REACTIONS (7)
  - Constipation [None]
  - Cardiac disorder [None]
  - Headache [None]
  - Somnolence [None]
  - Anorectal swelling [None]
  - Localised oedema [None]
  - Chills [None]

NARRATIVE: CASE EVENT DATE: 20160621
